FAERS Safety Report 9417143 (Version 2)
Quarter: 2013Q3

REPORT INFORMATION
  Report Type: Spontaneous
  Country: KR (occurrence: None)
  Receive Date: 20130722
  Receipt Date: 20130828
  Transmission Date: 20140515
  Serious: Yes (Hospitalization)
  Sender: FDA-Public Use
  Company Number: TPA2013A06684

PATIENT
  Age: 56 Year
  Sex: Male

DRUGS (2)
  1. COLCHICINE (COLCHICINE) [Suspect]
     Indication: GOUT
     Dosage: 0.6 MG (0.6 MG, 1 IN 1 D)
  2. CYCLOSPORINE (CICLOSPORIN) [Concomitant]
     Indication: HEART TRANSPLANT
     Dosage: 450 GM (450 MG, 1 IN 1 D)?

REACTIONS (6)
  - Pelvic pain [None]
  - Fatigue [None]
  - Asthenia [None]
  - Myopathy [None]
  - Neuropathy peripheral [None]
  - Drug interaction [None]
